FAERS Safety Report 15928515 (Version 1)
Quarter: 2019Q1

REPORT INFORMATION
  Report Type: Spontaneous
  Country: IT (occurrence: IT)
  Receive Date: 20190206
  Receipt Date: 20190206
  Transmission Date: 20190417
  Serious: No
  Sender: FDA-Public Use
  Company Number: IT-B. BRAUN MEDICAL INC.-2062212

PATIENT
  Age: 81 Year
  Sex: Female

DRUGS (18)
  1. ASCORBIC ACID. [Concomitant]
     Active Substance: ASCORBIC ACID
  2. COPPER [Concomitant]
     Active Substance: COPPER
  3. URSOBIL [Concomitant]
     Active Substance: URSODIOL
  4. ZINC. [Concomitant]
     Active Substance: ZINC
  5. MANGANESE [Concomitant]
     Active Substance: MANGANESE\MANGANESE CHLORIDE
  6. LASIX [Concomitant]
     Active Substance: FUROSEMIDE
  7. SELENIUM [Concomitant]
     Active Substance: SELENIUM
  8. TOCOPHERYL ACETATE [Concomitant]
     Active Substance: .ALPHA.-TOCOPHEROL ACETATE
  9. CYMBALTA [Concomitant]
     Active Substance: DULOXETINE HYDROCHLORIDE
  10. ROCEFIN [Concomitant]
     Active Substance: CEFTRIAXONE SODIUM
  11. LUVION [Concomitant]
  12. PANTOPRAZOLE [Concomitant]
     Active Substance: PANTOPRAZOLE
  13. BISOPROLOL [Concomitant]
     Active Substance: BISOPROLOL
  14. EUTIROX [Concomitant]
     Active Substance: LEVOTHYROXINE SODIUM
  15. MOVICOL [Concomitant]
     Active Substance: POLYETHYLENE GLYCOL 3350\POTASSIUM CHLORIDE\SODIUM BICARBONATE\SODIUM CHLORIDE
  16. ALLOPURINOL. [Concomitant]
     Active Substance: ALLOPURINOL
  17. BETACAROTENE [Concomitant]
     Active Substance: .BETA.-CAROTENE
  18. SODIUM CHLORIDE INJECTION USP 0264-7800-09 [Suspect]
     Active Substance: SODIUM CHLORIDE

REACTIONS (2)
  - Urticaria [Recovered/Resolved]
  - Hypersensitivity [Recovered/Resolved]
